FAERS Safety Report 9802786 (Version 1)
Quarter: 2014Q1

REPORT INFORMATION
  Report Type: Spontaneous
  Country: US (occurrence: None)
  Receive Date: 20140106
  Receipt Date: 20140106
  Transmission Date: 20141002
  Serious: Yes (Life-Threatening, Disabling)
  Sender: FDA-Public Use
  Company Number: None

PATIENT
  Age: 58 Year
  Sex: Female

DRUGS (1)
  1. VIIBRYD [Suspect]
     Indication: DEPRESSION
     Route: 048

REACTIONS (5)
  - Anaphylactic reaction [None]
  - Blood pressure increased [None]
  - VIIth nerve paralysis [None]
  - Paraesthesia [None]
  - Cerebrovascular accident [None]
